FAERS Safety Report 21038792 (Version 1)
Quarter: 2022Q3

REPORT INFORMATION
  Report Type: Spontaneous
  Country: HU (occurrence: HU)
  Receive Date: 20220704
  Receipt Date: 20220704
  Transmission Date: 20221027
  Serious: Yes (Other)
  Sender: FDA-Public Use
  Company Number: HU-002147023-NVSC2022HU139065

PATIENT
  Age: 31 Year
  Sex: Female

DRUGS (8)
  1. AZITHROMYCIN [Suspect]
     Active Substance: AZITHROMYCIN
     Indication: Pneumonia
     Dosage: UNK
     Dates: start: 2021
  2. CYTARABINE [Suspect]
     Active Substance: CYTARABINE
     Indication: Acute myeloid leukaemia
     Dosage: HIGH DOSE
     Dates: start: 199907
  3. FLUCONAZOLE [Suspect]
     Active Substance: FLUCONAZOLE
     Indication: Pyrexia
     Dosage: UNK
     Dates: start: 2021
  4. CEFTRIAXONE SODIUM [Suspect]
     Active Substance: CEFTRIAXONE SODIUM
     Indication: Pneumonia
     Dosage: UNK
     Dates: start: 2021
  5. MITOXANTRONE [Concomitant]
     Active Substance: MITOXANTRONE HYDROCHLORIDE
     Indication: Acute myeloid leukaemia
     Dosage: UNK
     Dates: start: 199907
  6. HYDROXYUREA [Concomitant]
     Active Substance: HYDROXYUREA
     Dosage: 500 MG, 1X/DAY
     Dates: start: 201107
  7. ASPIRIN [Concomitant]
     Active Substance: ASPIRIN
     Dosage: 100 MG, 1X/DAY
     Dates: start: 201107
  8. CYTARABINE [Concomitant]
     Active Substance: CYTARABINE
     Dosage: UNK (HIGH DOSE) (4X)

REACTIONS (14)
  - Interstitial lung disease [Unknown]
  - Pulmonary fibrosis [Unknown]
  - Blood lactate dehydrogenase increased [Unknown]
  - Pleural effusion [Unknown]
  - Platelet count increased [Unknown]
  - Pulmonary mass [Not Recovered/Not Resolved]
  - Lymphadenopathy [Unknown]
  - Emphysema [Unknown]
  - Pleural thickening [Unknown]
  - Procalcitonin increased [Recovered/Resolved]
  - Haemoglobin decreased [Unknown]
  - C-reactive protein increased [Recovered/Resolved]
  - Chronic obstructive pulmonary disease [Unknown]
  - White blood cell count increased [Unknown]

NARRATIVE: CASE EVENT DATE: 20210101
